FAERS Safety Report 24392529 (Version 1)
Quarter: 2024Q4

REPORT INFORMATION
  Report Type: Spontaneous
  Country: ZA (occurrence: ZA)
  Receive Date: 20241003
  Receipt Date: 20241003
  Transmission Date: 20250115
  Serious: Yes (Other)
  Sender: NOVARTIS
  Company Number: ZA-002147023-NVSC2024ZA194571

PATIENT
  Age: 67 Year
  Sex: Male

DRUGS (1)
  1. INCLISIRAN [Suspect]
     Active Substance: INCLISIRAN
     Indication: Hyperlipidaemia
     Dosage: 284 MG (MONTH 0, MONTH 3 MONTH 6 AND THEN 6 MONTHLY)
     Route: 058

REACTIONS (1)
  - Product prescribing error [Unknown]
